FAERS Safety Report 8310071-8 (Version None)
Quarter: 2012Q2

REPORT INFORMATION
  Report Type: 
  Country: None (occurrence: None)
  Receive Date: 20120425
  Receipt Date: 20120419
  Transmission Date: 20120825
  Serious: Yes (Life-Threatening, Hospitalization)
  Sender: FDA-Public Use
  Company Number: US-BAYER-2012-012689

PATIENT
  Age: 56 Year
  Sex: Male
  Weight: 63.4 kg

DRUGS (19)
  1. SORAFENIB (RAF KINASE INHIBITOR) [Suspect]
     Dosage: 400 MG, BID
     Route: 048
     Dates: start: 20111220, end: 20120130
  2. LISINOPRIL [Concomitant]
     Dosage: 20 MG, QD
     Dates: start: 20111219
  3. DILTIAZEM HYDROCHLORIDE [Concomitant]
     Dosage: 120 MG, QD
     Dates: start: 20120131
  4. SORAFENIB (RAF KINASE INHIBITOR) [Suspect]
     Dosage: 400 MG, BID
     Route: 048
     Dates: start: 20120131, end: 20120206
  5. RANITIDINE HCL [Concomitant]
     Dosage: 150 MG, BID
     Dates: start: 20120130
  6. SENNA [Concomitant]
     Indication: CONSTIPATION
     Dosage: 374 MG, QD
     Route: 048
  7. HYDROCHLOROTHIAZIDE [Concomitant]
     Indication: BLOOD PRESSURE ABNORMAL
     Dosage: 25 MG, OM
     Dates: start: 20111031
  8. MS CONTIN [Concomitant]
     Indication: PAIN
     Dosage: 30 MG, PRN EVERY 12 HRS
     Route: 048
  9. SIMETHICONE [Concomitant]
     Indication: FLATULENCE
     Dosage: PRN
     Route: 048
  10. SORAFENIB (RAF KINASE INHIBITOR) [Suspect]
     Indication: THYROID CANCER METASTATIC
     Dosage: 400 MG, BID
     Route: 048
     Dates: start: 20111031, end: 20111120
  11. OXYCODONE HYDROCHLORIDE [Concomitant]
     Indication: PAIN
     Dosage: 5 MG, PRN
     Dates: start: 20111031
  12. IMODIUM A-D [Concomitant]
     Indication: DIARRHOEA
     Dosage: 2 MG, PRN
     Dates: start: 20111031
  13. MIRALAX [Concomitant]
     Indication: CONSTIPATION
     Dosage: 1 DF, PRN
     Route: 048
  14. SORAFENIB (RAF KINASE INHIBITOR) [Suspect]
     Dosage: 400 MG, BID
     Route: 048
     Dates: start: 20111121, end: 20111219
  15. BLINDED SORAFENIB (RAF KINASE INHIBITOR) [Suspect]
     Indication: THYROID CANCER METASTATIC
     Dosage: UNK
     Dates: end: 20111031
  16. CALTRATE + D [CALCIUM CARBONATE,COLECALCIFEROL] [Concomitant]
     Dosage: 1 DF (600-400 MG TABS), BID
     Dates: start: 20110728
  17. DOCUSATE SODIUM [Concomitant]
     Indication: CONSTIPATION
     Dosage: 100 MG, BID
     Route: 048
  18. UREA [Concomitant]
     Route: 061
  19. LEVOTHYROXINE SODIUM [Concomitant]
     Dosage: 300 MG / DAY (TWO TABLETS PER DAY)
     Dates: start: 20110829

REACTIONS (2)
  - HYPONATRAEMIA [None]
  - PERICARDIAL EFFUSION [None]
